FAERS Safety Report 9865498 (Version 1)
Quarter: 2014Q1

REPORT INFORMATION
  Report Type: Spontaneous
  Country: US (occurrence: US)
  Receive Date: 20140203
  Receipt Date: 20140203
  Transmission Date: 20141002
  Serious: No
  Sender: FDA-Public Use
  Company Number: US-ALLERGAN-1309112US

PATIENT
  Age: 46 Year
  Sex: Female

DRUGS (3)
  1. RESTASIS [Suspect]
     Indication: DRY EYE
     Dosage: 2 GTT, BID
     Route: 047
  2. GENTEAL OINTMENT [Concomitant]
     Indication: DRY EYE
     Dosage: UNK, QHS
     Route: 047
  3. OMEGA 3 [Concomitant]
     Indication: DRY EYE
     Dosage: UNK, BID
     Route: 048

REACTIONS (8)
  - Eye infection [Unknown]
  - Glassy eyes [Unknown]
  - Ocular hyperaemia [Unknown]
  - Eye discharge [Unknown]
  - Eye pain [Unknown]
  - Scleral hyperaemia [Unknown]
  - Erythema of eyelid [Unknown]
  - Eye pain [Unknown]
